FAERS Safety Report 9703582 (Version 1)
Quarter: 2013Q4

REPORT INFORMATION
  Report Type: Spontaneous
  Country: US (occurrence: US)
  Receive Date: 20131122
  Receipt Date: 20131122
  Transmission Date: 20140711
  Serious: No
  Sender: FDA-Public Use
  Company Number: US-PFIZER INC-2013332447

PATIENT
  Age: 57 Year
  Sex: Female
  Weight: 109 kg

DRUGS (6)
  1. LEVOXYL [Suspect]
     Indication: THYROID DISORDER
     Dosage: UNK
     Dates: end: 201305
  2. LEVOTHYROXINE SODIUM [Suspect]
     Indication: THYROID DISORDER
     Dosage: UNK
     Dates: start: 2013
  3. TIROSINT [Suspect]
     Indication: THYROID DISORDER
     Dosage: UNK
     Dates: start: 201305, end: 201311
  4. ARMOUR THYROID [Suspect]
     Indication: THYROID DISORDER
     Dosage: UNK
     Dates: start: 2013, end: 201309
  5. SYNTHROID [Suspect]
     Indication: THYROID DISORDER
     Dosage: UNK
     Dates: start: 2013
  6. FLEXERIL [Concomitant]
     Indication: MYALGIA
     Dosage: UNK

REACTIONS (8)
  - Weight increased [Unknown]
  - Dysphagia [Unknown]
  - Headache [Recovering/Resolving]
  - Neck pain [Recovering/Resolving]
  - Musculoskeletal stiffness [Recovering/Resolving]
  - Nausea [Recovering/Resolving]
  - Hypothyroidism [Unknown]
  - Drug ineffective [Unknown]
